FAERS Safety Report 5019636-2 (Version None)
Quarter: 2006Q2

REPORT INFORMATION
  Report Type: 
  Country: None (occurrence: None)
  Receive Date: 20060601
  Receipt Date: 20060519
  Transmission Date: 20061013
  Serious: Yes (Hospitalization)
  Sender: FDA-Public Use
  Company Number: HQWYE412519MAY06

PATIENT
  Age: 38 Year
  Sex: Female

DRUGS (5)
  1. PANTOPRAZOLE SODIUM [Suspect]
     Indication: GASTROOESOPHAGEAL REFLUX DISEASE
     Dosage: 20 MG 2X PER 1 DAY ORAL; SEE IMAGE
     Route: 048
     Dates: start: 20060301, end: 20060301
  2. PANTOPRAZOLE SODIUM [Suspect]
     Indication: GASTROOESOPHAGEAL REFLUX DISEASE
     Dosage: 20 MG 2X PER 1 DAY ORAL; SEE IMAGE
     Route: 048
     Dates: start: 20020101
  3. PANTOPRAZOLE SODIUM [Suspect]
     Indication: GASTROOESOPHAGEAL REFLUX DISEASE
     Dosage: 20 MG 2X PER 1 DAY ORAL; SEE IMAGE
     Route: 048
     Dates: start: 20050409
  4. MICROGYNON (ETHINYLESTRADIOL/LEVONORGESTREL, ) [Suspect]
     Dosage: 1 DOSAGE FORM 1X PER 1 DAY ORAL
     Route: 048
     Dates: start: 20020101
  5. PASPERTIN (METOCLOPRAMIDE HYDROCHLORIDE) [Concomitant]

REACTIONS (7)
  - ALANINE AMINOTRANSFERASE INCREASED [None]
  - ASPARTATE AMINOTRANSFERASE INCREASED [None]
  - BLOOD ALKALINE PHOSPHATASE INCREASED [None]
  - BLOOD LACTATE DEHYDROGENASE INCREASED [None]
  - GAMMA-GLUTAMYLTRANSFERASE INCREASED [None]
  - URINARY TRACT INFECTION [None]
  - VOMITING [None]
